FAERS Safety Report 14571358 (Version 2)
Quarter: 2018Q2

REPORT INFORMATION
  Report Type: Spontaneous
  Country: JP (occurrence: JP)
  Receive Date: 20180226
  Receipt Date: 20180421
  Transmission Date: 20180711
  Serious: Yes (Hospitalization)
  Sender: FDA-Public Use
  Company Number: JP-B.I. PHARMACEUTICALS,INC./RIDGEFIELD-2018-NB-000821

PATIENT
  Age: 56 Year
  Sex: Female

DRUGS (2)
  1. GILOTRIF [Suspect]
     Active Substance: AFATINIB
     Route: 065
     Dates: start: 201704, end: 20170615
  2. GILOTRIF [Suspect]
     Active Substance: AFATINIB
     Indication: PULMONARY MASS
     Route: 065
     Dates: start: 201608

REACTIONS (3)
  - Enterocolitis [Unknown]
  - Drug eruption [Unknown]
  - Hypoproteinaemia [Unknown]

NARRATIVE: CASE EVENT DATE: 20170401
